FAERS Safety Report 20642289 (Version 1)
Quarter: 2022Q1

REPORT INFORMATION
  Report Type: Spontaneous
  Country: CN (occurrence: CN)
  Receive Date: 20220328
  Receipt Date: 20220328
  Transmission Date: 20220423
  Serious: Yes (Other)
  Sender: FDA-Public Use
  Company Number: CN-009507513-2203CHN007890

PATIENT
  Age: 11 Month
  Sex: Male
  Weight: 8.4 kg

DRUGS (3)
  1. CILASTATIN SODIUM\IMIPENEM [Suspect]
     Active Substance: CILASTATIN SODIUM\IMIPENEM
     Indication: Bronchitis
     Dosage: 0.3 GRAM, Q6H
     Route: 041
     Dates: start: 20220223, end: 20220315
  2. SODIUM CHLORIDE [Concomitant]
     Active Substance: SODIUM CHLORIDE
     Indication: Medication dilution
     Dosage: 100 MILLILITER, Q6H
     Route: 041
     Dates: start: 20220223, end: 20220315
  3. IBUPROFEN [Concomitant]
     Active Substance: IBUPROFEN
     Indication: Pyrexia
     Dosage: 3 MILLILITER, BID
     Route: 048
     Dates: start: 20220221, end: 20220225

REACTIONS (2)
  - Liver injury [Recovering/Resolving]
  - Incorrect dose administered [Unknown]

NARRATIVE: CASE EVENT DATE: 20220223
